FAERS Safety Report 20626973 (Version 2)
Quarter: 2022Q2

REPORT INFORMATION
  Report Type: Spontaneous
  Country: FR (occurrence: FR)
  Receive Date: 20220323
  Receipt Date: 20220420
  Transmission Date: 20220721
  Serious: No
  Sender: FDA-Public Use
  Company Number: FR-PFIZER INC-202200437437

PATIENT
  Age: 83 Year
  Sex: Female
  Weight: 60 kg

DRUGS (1)
  1. PAXLOVID [Suspect]
     Active Substance: NIRMATRELVIR\RITONAVIR
     Indication: COVID-19 treatment
     Dosage: [PF-07321332 300MG] / [RITONAVIR 100MG] 2X/DAY
     Route: 048
     Dates: start: 20220221

REACTIONS (1)
  - Incorrect dose administered [Unknown]
